FAERS Safety Report 15851971 (Version 1)
Quarter: 2019Q1

REPORT INFORMATION
  Report Type: Spontaneous
  Country: FR (occurrence: FR)
  Receive Date: 20190122
  Receipt Date: 20190122
  Transmission Date: 20190417
  Serious: Yes (Other)
  Sender: FDA-Public Use
  Company Number: FR-IPSEN BIOPHARMACEUTICALS, INC.-2019-00972

PATIENT
  Age: 72 Year
  Sex: Female
  Weight: 60 kg

DRUGS (3)
  1. ASPEGIC 500 MG [Concomitant]
     Dosage: POWDER FOR ORAL SOLUTION IN SACHET-DOSE
     Dates: start: 2015
  2. FAMPYRA 10 MG [Concomitant]
     Dosage: EXTENDED RELEASE TABLET
     Dates: start: 2013
  3. DYSPORT [Suspect]
     Active Substance: ABOBOTULINUMTOXINA
     Indication: MUSCLE SPASTICITY
     Dosage: OR 1000 U SPEYWOOD DIVIDED INTO SEVERAL LOCATIONS
     Route: 030
     Dates: start: 20180228, end: 20180228

REACTIONS (6)
  - Urinary incontinence [Recovered/Resolved]
  - Eyelid ptosis [Recovered/Resolved]
  - Asthenia [Recovered/Resolved]
  - Muscle spasticity [Recovered/Resolved]
  - Gait disturbance [Recovered/Resolved]
  - Dry mouth [Recovered/Resolved]

NARRATIVE: CASE EVENT DATE: 20180311
